FAERS Safety Report 6824807-6 (Version None)
Quarter: 2010Q3

REPORT INFORMATION
  Report Type: 
  Country: None (occurrence: None)
  Receive Date: 20100708
  Receipt Date: 20100625
  Transmission Date: 20110219
  Serious: Yes (Other)
  Sender: FDA-Public Use
  Company Number: US-MYLANLABS-2010S1011655

PATIENT
  Age: 78 Year
  Sex: Male

DRUGS (4)
  1. LIPITOR [Suspect]
  2. COUMADIN [Suspect]
  3. ALLOPURINOL [Suspect]
  4. LUMIGAN [Suspect]

REACTIONS (2)
  - CONSTIPATION [None]
  - HAEMORRHOIDAL HAEMORRHAGE [None]
